FAERS Safety Report 19927466 (Version 1)
Quarter: 2021Q4

REPORT INFORMATION
  Report Type: Spontaneous
  Country: US (occurrence: US)
  Receive Date: 20211007
  Receipt Date: 20211007
  Transmission Date: 20220303
  Serious: No
  Sender: FDA-Public Use
  Company Number: US-ELI_LILLY_AND_COMPANY-US202110001025

PATIENT
  Age: 35 Year
  Sex: Female

DRUGS (1)
  1. REYVOW [Suspect]
     Active Substance: LASMIDITAN
     Indication: Migraine
     Dosage: 100 MG, UNKNOWN
     Route: 048

REACTIONS (4)
  - Sedation [Recovered/Resolved]
  - Euphoric mood [Recovered/Resolved]
  - Limb discomfort [Recovered/Resolved]
  - Muscle twitching [Recovered/Resolved]
